FAERS Safety Report 6707581-3 (Version None)
Quarter: 2010Q2

REPORT INFORMATION
  Report Type: 
  Country: None (occurrence: None)
  Receive Date: 20100503
  Receipt Date: 20091123
  Transmission Date: 20101027
  Serious: Yes (Other)
  Sender: FDA-Public Use
  Company Number: US-BAYER-200914984BCC

PATIENT
  Sex: Female

DRUGS (1)
  1. ALKA SELTZER PLUS LIQUID GELS DAY/ NIGHT COMBO [Suspect]
     Indication: NASOPHARYNGITIS
     Route: 048
     Dates: start: 20080101

REACTIONS (4)
  - FEELING ABNORMAL [None]
  - MALAISE [None]
  - MENTAL IMPAIRMENT [None]
  - SOMNOLENCE [None]
